FAERS Safety Report 9456086 (Version 1)
Quarter: 2013Q3

REPORT INFORMATION
  Report Type: Report from Study
  Country: US (occurrence: US)
  Receive Date: 20130813
  Receipt Date: 20130813
  Transmission Date: 20140515
  Serious: Yes (Hospitalization)
  Sender: FDA-Public Use
  Company Number: US-ACTELION-A-US2013-86878

PATIENT
  Age: 68 Year
  Sex: Female

DRUGS (6)
  1. TRACLEER [Suspect]
     Indication: PULMONARY ARTERIAL HYPERTENSION
     Dosage: 125 MG, BID
     Route: 048
     Dates: start: 201004
  2. BUPROPION [Concomitant]
     Dosage: 150 MG, QD
  3. COUMADIN [Concomitant]
     Dosage: 5 MG, QD
  4. OXYBUTIN [Concomitant]
     Dosage: 5 MG, QD
  5. SERTRALINE [Concomitant]
     Dosage: 50 MG, QD
  6. OXYGEN [Concomitant]
     Dosage: 2 L/MIN, CONTINUOUS

REACTIONS (8)
  - Thrombosis [Recovered/Resolved]
  - Nasal congestion [Recovered/Resolved]
  - Dyspnoea [Recovering/Resolving]
  - Blood potassium decreased [Recovering/Resolving]
  - Blood calcium decreased [Recovered/Resolved]
  - Pulmonary arterial pressure increased [Not Recovered/Not Resolved]
  - Arterial injury [Not Recovered/Not Resolved]
  - Swelling [Recovering/Resolving]
